FAERS Safety Report 21983157 (Version 1)
Quarter: 2023Q1

REPORT INFORMATION
  Report Type: Spontaneous
  Country: US (occurrence: US)
  Receive Date: 20230213
  Receipt Date: 20230213
  Transmission Date: 20230418
  Serious: Yes (Other)
  Sender: FDA-Public Use
  Company Number: US-COLGATE PALMOLIVE COMPANY-20230100159

PATIENT
  Sex: Male

DRUGS (1)
  1. COLGATE OPTIC WHITE RENEWAL HIGH IMPACT WHITE [Suspect]
     Active Substance: SODIUM MONOFLUOROPHOSPHATE
     Dosage: UNK
     Dates: start: 202207, end: 2022

REACTIONS (3)
  - Oral discomfort [Unknown]
  - Ageusia [Not Recovered/Not Resolved]
  - Product physical consistency issue [Unknown]

NARRATIVE: CASE EVENT DATE: 20220701
